FAERS Safety Report 6332618-3 (Version None)
Quarter: 2009Q3

REPORT INFORMATION
  Report Type: 
  Country: None (occurrence: None)
  Receive Date: 20090828
  Receipt Date: 20090817
  Transmission Date: 20100115
  Serious: Yes (Other)
  Sender: FDA-Public Use
  Company Number: RO-ROCHE-650792

PATIENT
  Sex: Female
  Weight: 58 kg

DRUGS (3)
  1. PEGASYS [Suspect]
     Dosage: FREQUENCY REPORTED AS: ^Q WEKLY^.
     Route: 058
     Dates: start: 20081203, end: 20090812
  2. COPEGUS [Suspect]
     Dosage: FREQUENCY REPORTED AS: ^DAILY^.
     Route: 048
     Dates: start: 20081203, end: 20090812
  3. TAVOR [Concomitant]
     Dosage: FREQUENCY REPORTED AS: ^DAILY^. DRUG NAME REPORTED AS: ^TAVER^.
     Route: 048

REACTIONS (5)
  - ABDOMINAL PAIN [None]
  - CHILLS [None]
  - DISSEMINATED INTRAVASCULAR COAGULATION [None]
  - PYREXIA [None]
  - THROMBOCYTOPENIA [None]
